FAERS Safety Report 7740248-1 (Version None)
Quarter: 2011Q3

REPORT INFORMATION
  Report Type: 
  Country: None (occurrence: None)
  Receive Date: 20110909
  Receipt Date: 20110831
  Transmission Date: 20111222
  Serious: Yes (Hospitalization)
  Sender: FDA-Public Use
  Company Number: JP-ROCHE-684408

PATIENT
  Sex: Male
  Weight: 98 kg

DRUGS (8)
  1. CEFDINIR [Concomitant]
     Route: 048
     Dates: start: 20090401, end: 20090401
  2. GATIFLOXACIN [Concomitant]
     Dosage: DOSAGE IS UNCERTAIN.
     Route: 047
     Dates: start: 20090401, end: 20090401
  3. AVASTIN [Suspect]
     Indication: MACULOPATHY
     Route: 031
     Dates: start: 20071204, end: 20071204
  4. AVASTIN [Suspect]
     Route: 031
     Dates: start: 20081202, end: 20081202
  5. AVASTIN [Suspect]
     Route: 031
     Dates: start: 20090106, end: 20090106
  6. AVASTIN [Suspect]
     Route: 031
     Dates: start: 20090202, end: 20090202
  7. AVASTIN [Suspect]
     Dosage: DISCONTINUED
     Route: 031
     Dates: start: 20090413, end: 20090413
  8. OFLOXACIN [Concomitant]
     Dosage: DOSAGE IS UNCERTAIN.
     Route: 047
     Dates: start: 20090401, end: 20090401

REACTIONS (1)
  - PSEUDOENDOPHTHALMITIS [None]
